FAERS Safety Report 25743140 (Version 2)
Quarter: 2025Q4

REPORT INFORMATION
  Report Type: Spontaneous
  Country: US (occurrence: US)
  Receive Date: 20250830
  Receipt Date: 20251004
  Transmission Date: 20260118
  Serious: No
  Sender: MICRO LABS LIMITED
  Company Number: US-862174955-ML2025-04310

PATIENT
  Age: 73 Year
  Sex: Female
  Weight: 60 kg

DRUGS (2)
  1. CROMOLYN SODIUM [Suspect]
     Active Substance: CROMOLYN SODIUM
     Indication: Mast cell activation syndrome
     Dosage: STRENGTH: 100 MG/5 ML?DOSE: 2 AMPULES AT A TIME (TOTAL 8 AMPULES IN A DAY)?FREQUENCY: FOUR TIMES A D
     Route: 048
     Dates: start: 2025
  2. ACETAMINOPHEN [Concomitant]
     Active Substance: ACETAMINOPHEN
     Indication: Mast cell activation syndrome
     Dosage: OCCASIONALLY TAKING

REACTIONS (4)
  - Flatulence [Unknown]
  - Product with quality issue administered [Unknown]
  - Suspected product contamination [Unknown]
  - Product odour abnormal [Unknown]

NARRATIVE: CASE EVENT DATE: 20250801
